FAERS Safety Report 9578709 (Version 2)
Quarter: 2013Q4

REPORT INFORMATION
  Report Type: Spontaneous
  Country: US (occurrence: US)
  Receive Date: 20131001
  Receipt Date: 20131001
  Transmission Date: 20140711
  Serious: No
  Sender: FDA-Public Use
  Company Number: US-AMGEN-USASP2012083975

PATIENT
  Age: 49 Year
  Sex: Female

DRUGS (2)
  1. ENBREL [Suspect]
     Indication: RHEUMATOID ARTHRITIS
     Dosage: 50 MG, QWK
     Route: 058
     Dates: start: 20121009
  2. METHOTREXATE [Concomitant]
     Dosage: UNK

REACTIONS (7)
  - Dry mouth [Unknown]
  - Glossitis [Unknown]
  - Lip swelling [Unknown]
  - Cheilitis [Unknown]
  - Ageusia [Unknown]
  - Dysgeusia [Unknown]
  - Throat irritation [Unknown]
